FAERS Safety Report 25567307 (Version 1)
Quarter: 2025Q3

REPORT INFORMATION
  Report Type: Spontaneous
  Country: US (occurrence: None)
  Receive Date: 20250716
  Receipt Date: 20250716
  Transmission Date: 20251021
  Serious: No
  Sender: FDA-CTU
  Company Number: None

PATIENT
  Age: 62 Year
  Sex: Female
  Weight: 75.6 kg

DRUGS (3)
  1. EVENITY [Suspect]
     Active Substance: ROMOSOZUMAB-AQQG
     Indication: Osteoporosis
     Dates: start: 20250609
  2. XARELTO [Concomitant]
     Active Substance: RIVAROXABAN
  3. PREDNISONE [Concomitant]
     Active Substance: PREDNISONE

REACTIONS (8)
  - Pain [None]
  - Paraesthesia [None]
  - Hyperaesthesia [None]
  - Neuralgia [None]
  - Pruritus [None]
  - Raynaud^s phenomenon [None]
  - Interstitial lung disease [None]
  - Scleroderma [None]

NARRATIVE: CASE EVENT DATE: 20250714
